APPROVED DRUG PRODUCT: PHENAPHEN-650 W/ CODEINE
Active Ingredient: ACETAMINOPHEN; CODEINE PHOSPHATE
Strength: 650MG;30MG
Dosage Form/Route: TABLET;ORAL
Application: A085856 | Product #001
Applicant: AH ROBINS CO
Approved: Approved Prior to Jan 1, 1982 | RLD: No | RS: No | Type: DISCN